FAERS Safety Report 5038160-4 (Version None)
Quarter: 2006Q2

REPORT INFORMATION
  Report Type: 
  Country: None (occurrence: None)
  Receive Date: 20060622
  Receipt Date: 20060612
  Transmission Date: 20061013
  Serious: Yes (Death, Other)
  Sender: FDA-Public Use
  Company Number: 2006072819

PATIENT
  Age: 45 Year
  Sex: Male

DRUGS (3)
  1. ZOLOFT [Suspect]
     Indication: ILL-DEFINED DISORDER
     Dosage: 1 IN 1 D
  2. ALL OTHER THERAPEUTIC PRODUCTS (ALL OTHER THERAPEUTIC PRODUCTS) [Concomitant]
  3. FLEXERIL [Concomitant]

REACTIONS (7)
  - ARTERIOSCLEROSIS [None]
  - ASTHENIA [None]
  - DRUG LEVEL INCREASED [None]
  - FAECAL INCONTINENCE [None]
  - IMPRISONMENT [None]
  - RENAL FAILURE CHRONIC [None]
  - URINARY INCONTINENCE [None]
